FAERS Safety Report 20109588 (Version 1)
Quarter: 2021Q4

REPORT INFORMATION
  Report Type: Spontaneous
  Country: US (occurrence: None)
  Receive Date: 20211124
  Receipt Date: 20211124
  Transmission Date: 20220303
  Serious: Yes (Disabling, Other)
  Sender: FDA-Public Use
  Company Number: None

PATIENT
  Age: 40 Year
  Sex: Female
  Weight: 69.75 kg

DRUGS (1)
  1. LEVOTHYROXINE [Suspect]
     Active Substance: LEVOTHYROXINE
     Indication: Hypothyroidism
     Dosage: OTHER STRENGTH : MCG;?OTHER QUANTITY : 30 TABLET(S);?
     Route: 048
     Dates: start: 20211102, end: 20211124

REACTIONS (3)
  - Product substitution issue [None]
  - Drug ineffective [None]
  - Symptom recurrence [None]

NARRATIVE: CASE EVENT DATE: 20211122
